FAERS Safety Report 4343719-3 (Version None)
Quarter: 2004Q2

REPORT INFORMATION
  Report Type: 
  Country: None (occurrence: None)
  Receive Date: 20040419
  Receipt Date: 20040401
  Transmission Date: 20050107
  Serious: Yes (Hospitalization)
  Sender: FDA-Public Use
  Company Number: 04-074-0768-1

PATIENT
  Age: 65 Year
  Sex: Female
  Weight: 124 kg

DRUGS (2)
  1. DAUNORUBICIN, UNKNOWN STRENGTH, BEN VENUE LABS [Suspect]
     Indication: ACUTE MYELOID LEUKAEMIA
     Dosage: 45MG/M2, IV DAYS 1,3
     Route: 042
     Dates: start: 20040122
  2. REFER TO ATTACHMENT I [Concomitant]

REACTIONS (5)
  - ALKALOSIS [None]
  - HYPOCALCAEMIA [None]
  - HYPOKALAEMIA [None]
  - HYPOXIA [None]
  - SINUS BRADYCARDIA [None]
